FAERS Safety Report 8243164-4 (Version None)
Quarter: 2012Q1

REPORT INFORMATION
  Report Type: 
  Country: None (occurrence: None)
  Receive Date: 20120314
  Receipt Date: 20110411
  Transmission Date: 20120608
  Serious: Yes (Life-Threatening)
  Sender: FDA-Public Use
  Company Number: PHHY2011US12113

PATIENT
  Sex: Female
  Weight: 53.5 kg

DRUGS (4)
  1. AMBIEN [Suspect]
     Indication: INSOMNIA
     Dosage: 10 MG, TRANSDERMAL
     Route: 062
  2. CELEXA [Suspect]
     Indication: DEPRESSION
     Dosage: 40 MG, IN AM, ORAL
     Route: 048
  3. FANAPT [Suspect]
     Dosage: 6 MG, BID
     Dates: start: 20100801, end: 20101101
  4. VALIUM [Suspect]
     Indication: ANXIETY
     Dosage: 10 MG, BID

REACTIONS (1)
  - RENAL FAILURE ACUTE [None]
